FAERS Safety Report 6754686-7 (Version None)
Quarter: 2010Q2

REPORT INFORMATION
  Report Type: 
  Country: None (occurrence: None)
  Receive Date: 20100524
  Receipt Date: 20100319
  Transmission Date: 20101027
  Serious: No
  Sender: FDA-Public Use
  Company Number: 009167

PATIENT
  Sex: Male

DRUGS (1)
  1. CIMZIA [Suspect]
     Dosage: 400 MG SUBCUTANEOUS
     Route: 058
     Dates: start: 20100101

REACTIONS (1)
  - RASH [None]
